FAERS Safety Report 17818207 (Version 1)
Quarter: 2020Q2

REPORT INFORMATION
  Report Type: Spontaneous
  Country: ES (occurrence: ES)
  Receive Date: 20200522
  Receipt Date: 20200522
  Transmission Date: 20200714
  Serious: Yes (Other)
  Sender: FDA-Public Use
  Company Number: NVSC2020ES140439

PATIENT
  Age: 39 Year
  Sex: Female

DRUGS (1)
  1. AMOXICILLIN. [Suspect]
     Active Substance: AMOXICILLIN
     Indication: SELF-MEDICATION
     Dosage: AUTOMEDICACION
     Route: 065
     Dates: start: 20200303

REACTIONS (3)
  - Pruritus [Recovering/Resolving]
  - Throat tightness [Recovering/Resolving]
  - Laryngeal oedema [Recovering/Resolving]

NARRATIVE: CASE EVENT DATE: 20200303
